FAERS Safety Report 7761318-8 (Version None)
Quarter: 2011Q3

REPORT INFORMATION
  Report Type: 
  Country: None (occurrence: None)
  Receive Date: 20110920
  Receipt Date: 20110914
  Transmission Date: 20111222
  Serious: No
  Sender: FDA-Public Use
  Company Number: US-PFIZER INC-2011218159

PATIENT
  Sex: Male
  Weight: 113 kg

DRUGS (8)
  1. DILAUDID [Concomitant]
     Dosage: 2 MG, UNK
  2. RITALIN [Concomitant]
     Dosage: 10 MG, UNK
  3. CYMBALTA [Concomitant]
     Dosage: 30 MG, UNK
  4. SUTENT [Suspect]
     Dosage: 37.5 MG, 1X/DAY
  5. MORPHINE [Concomitant]
     Dosage: 30 MG, UNK
  6. LYRICA [Concomitant]
     Dosage: 100 MG, UNK
  7. DEXAMETHASONE [Concomitant]
     Dosage: 4 MG, UNK
  8. STOOL SOFTENER [Concomitant]
     Dosage: 240 MG, UNK

REACTIONS (1)
  - STOMATITIS [None]
